FAERS Safety Report 21010703 (Version 1)
Quarter: 2022Q2

REPORT INFORMATION
  Report Type: Report from Study
  Country: US (occurrence: US)
  Receive Date: 20220627
  Receipt Date: 20220627
  Transmission Date: 20220721
  Serious: No
  Sender: FDA-Public Use
  Company Number: US-CELGENE-USA-20210308512

PATIENT
  Age: 61 Year
  Sex: Female
  Weight: 66.2 kg

DRUGS (2)
  1. REVLIMID [Suspect]
     Active Substance: LENALIDOMIDE
     Indication: Plasma cell myeloma
     Dosage: 20 MILLIGRAM
     Route: 048
     Dates: start: 20201212
  2. REVLIMID [Suspect]
     Active Substance: LENALIDOMIDE
     Route: 048
     Dates: start: 20220227

REACTIONS (3)
  - Back pain [Unknown]
  - Paraesthesia [Recovering/Resolving]
  - Eye infection [Recovering/Resolving]

NARRATIVE: CASE EVENT DATE: 20220201
